FAERS Safety Report 4759635-9 (Version None)
Quarter: 2005Q3

REPORT INFORMATION
  Report Type: 
  Country: None (occurrence: None)
  Receive Date: 20050901
  Receipt Date: 20050511
  Transmission Date: 20060218
  Serious: Yes (Hospitalization, Disabling, Other)
  Sender: FDA-Public Use
  Company Number: US-MERCK-0505USA01509

PATIENT
  Age: 69 Year
  Sex: Female
  Weight: 82 kg

DRUGS (3)
  1. VIOXX [Suspect]
     Indication: OSTEOARTHRITIS
     Route: 048
     Dates: start: 20000401, end: 20030301
  2. HYDROCHLOROTHIAZIDE [Concomitant]
     Indication: HYPERTENSION
     Route: 065
  3. PREMPRO [Concomitant]
     Indication: MENOPAUSE
     Route: 065
     Dates: start: 19950101, end: 20000101

REACTIONS (6)
  - ARTHROPATHY [None]
  - BASAL CELL CARCINOMA [None]
  - BLOOD CHOLESTEROL INCREASED [None]
  - CEREBROVASCULAR ACCIDENT [None]
  - DEPRESSION [None]
  - KNEE ARTHROPLASTY [None]
